FAERS Safety Report 7063660-5 (Version None)
Quarter: 2010Q4

REPORT INFORMATION
  Report Type: 
  Country: None (occurrence: None)
  Receive Date: 20101026
  Receipt Date: 20100727
  Transmission Date: 20110411
  Serious: Yes (Other)
  Sender: FDA-Public Use
  Company Number: US-ABBOTT-10P-163-0653237-00

PATIENT
  Sex: Female
  Weight: 76.726 kg

DRUGS (3)
  1. LUPRON DEPOT [Suspect]
     Indication: ENDOMETRIOSIS
     Route: 050
     Dates: start: 20100401, end: 20100601
  2. EXCEDRIN (MIGRAINE) [Concomitant]
     Indication: MIGRAINE
  3. MAXALT [Concomitant]
     Indication: MIGRAINE

REACTIONS (1)
  - CONVULSION [None]
